FAERS Safety Report 6535738-3 (Version None)
Quarter: 2010Q1

REPORT INFORMATION
  Report Type: 
  Country: None (occurrence: None)
  Receive Date: 20100106
  Receipt Date: 20091229
  Transmission Date: 20100710
  Serious: Yes (Life-Threatening)
  Sender: FDA-Public Use
  Company Number: FR-GUERBET-20090224

PATIENT
  Age: 62 Year
  Sex: Female

DRUGS (9)
  1. HEXABRIX [Suspect]
     Indication: ARTERIOGRAM CORONARY
     Dosage: INTRA-ARTERIAL
     Route: 013
     Dates: start: 20091124, end: 20091124
  2. XYLOCAINE [Concomitant]
  3. DEPAKENE [Concomitant]
  4. TENORMIN [Concomitant]
  5. PLAVIX [Concomitant]
  6. ASPEGIC 1000 [Concomitant]
  7. SECTRAL [Concomitant]
  8. TRIATEC [Concomitant]
  9. TAHOR [Concomitant]

REACTIONS (2)
  - CIRCULATORY COLLAPSE [None]
  - CONJUNCTIVAL HYPERAEMIA [None]
